FAERS Safety Report 9281273 (Version 1)
Quarter: 2013Q2

REPORT INFORMATION
  Report Type: Spontaneous
  Country: US (occurrence: US)
  Receive Date: 20130509
  Receipt Date: 20130509
  Transmission Date: 20140414
  Serious: No
  Sender: FDA-Public Use
  Company Number: US-BAYER-2013-054592

PATIENT
  Age: 47 Year
  Sex: Male
  Weight: 136.5 kg

DRUGS (7)
  1. BETASERON [Suspect]
     Dosage: 0.25 MG, QOD
     Route: 058
  2. TRIBENZOR [Concomitant]
  3. VITAMIN C [Concomitant]
  4. CALCIUM +VIT D [Concomitant]
  5. VITAMIN B12 [Concomitant]
  6. PRILOSEC [Concomitant]
  7. ASA [Concomitant]

REACTIONS (1)
  - Paraesthesia [Unknown]
